FAERS Safety Report 11410649 (Version 2)
Quarter: 2015Q4

REPORT INFORMATION
  Report Type: Spontaneous
  Country: BR (occurrence: BR)
  Receive Date: 20150824
  Receipt Date: 20151009
  Transmission Date: 20160304
  Serious: Yes (Hospitalization)
  Sender: FDA-Public Use
  Company Number: BR-PFIZER INC-2015275706

PATIENT
  Age: 83 Year
  Sex: Male
  Weight: 72.8 kg

DRUGS (10)
  1. LOSARTAN POTASSIUM. [Concomitant]
     Active Substance: LOSARTAN POTASSIUM
     Indication: BLOOD PRESSURE ABNORMAL
     Dosage: 1 OF STRENGTH 50 MG IN THE MORNING AND 1 IN THE AFTERNOON
     Dates: start: 2010
  2. ASPIRINA [Concomitant]
     Active Substance: ASPIRIN
  3. ASPIRINA INFANTIL [Concomitant]
     Indication: COAGULOPATHY
     Dosage: 1 DF, DAILY
     Dates: start: 2011
  4. RITMONORM [Concomitant]
     Active Substance: PROPAFENONE HYDROCHLORIDE
     Indication: HEART RATE ABNORMAL
     Dosage: 1 TABLET AT 8:00 AM
  5. LIPITOR [Suspect]
     Active Substance: ATORVASTATIN CALCIUM
     Indication: BLOOD CHOLESTEROL INCREASED
     Dosage: AT 1 (AS REPORTED) AT DINNER
     Route: 048
     Dates: start: 2011
  6. LIPITOR [Suspect]
     Active Substance: ATORVASTATIN CALCIUM
     Dosage: 80 MG (1 DF), 1X/DAY AT DINNER
     Route: 048
     Dates: start: 201508
  7. NORVASC [Concomitant]
     Active Substance: AMLODIPINE BESYLATE
     Indication: BLOOD PRESSURE ABNORMAL
     Dosage: 1 IN THE MORNING AND 1 OF STRENGTH 5 MG IN THE AFTERNOON
     Dates: start: 2010
  8. LIPITOR [Suspect]
     Active Substance: ATORVASTATIN CALCIUM
     Dosage: 10MG
     Dates: start: 2013, end: 201508
  9. STILNOX [Concomitant]
     Active Substance: ZOLPIDEM TARTRATE
     Indication: SLEEP DISORDER
     Dosage: 0.5 MG, BEFORE SLEEP
     Dates: start: 2013
  10. RIVOTRIL [Concomitant]
     Active Substance: CLONAZEPAM
     Indication: RELAXATION THERAPY
     Dosage: 1 TABLET AT 8:00 AM AND 1 AT 4:00 PM
     Dates: start: 2012, end: 2014

REACTIONS (3)
  - Feeling abnormal [Not Recovered/Not Resolved]
  - Cardiac arrest [Recovered/Resolved]
  - Pain in extremity [Not Recovered/Not Resolved]

NARRATIVE: CASE EVENT DATE: 2011
